FAERS Safety Report 8965634 (Version 1)
Quarter: 2012Q4

REPORT INFORMATION
  Report Type: Spontaneous
  Country: US (occurrence: None)
  Receive Date: 20121212
  Receipt Date: 20121212
  Transmission Date: 20130627
  Serious: Yes (Hospitalization)
  Sender: FDA-Public Use
  Company Number: None

PATIENT
  Age: 26 Year
  Sex: Female
  Weight: 104.33 kg

DRUGS (1)
  1. MIRENA IUD [Suspect]
     Dates: start: 20120424, end: 20121128

REACTIONS (2)
  - Pregnancy with contraceptive device [None]
  - Device dislocation [None]
